FAERS Safety Report 7139499-9 (Version None)
Quarter: 2010Q4

REPORT INFORMATION
  Report Type: 
  Country: None (occurrence: None)
  Receive Date: 20101206
  Receipt Date: 20101129
  Transmission Date: 20110411
  Serious: Yes (Death)
  Sender: FDA-Public Use
  Company Number: CA-ABBOTT-10P-028-0688342-00

PATIENT
  Sex: Male
  Weight: 78.5 kg

DRUGS (3)
  1. MAVIK [Suspect]
     Indication: ESSENTIAL HYPERTENSION
     Dosage: 2MG DAILY
     Dates: start: 20100625
  2. DIURETIC [Concomitant]
     Indication: PRODUCT USED FOR UNKNOWN INDICATION
  3. B BLOCKER [Concomitant]
     Indication: PRODUCT USED FOR UNKNOWN INDICATION

REACTIONS (1)
  - SUDDEN DEATH [None]
